FAERS Safety Report 19390865 (Version 1)
Quarter: 2021Q2

REPORT INFORMATION
  Report Type: Spontaneous
  Country: JP (occurrence: JP)
  Receive Date: 20210608
  Receipt Date: 20210608
  Transmission Date: 20210717
  Serious: Yes (Other)
  Sender: FDA-Public Use
  Company Number: JP-GILEAD-2021-0534365

PATIENT
  Age: 62 Year
  Sex: Female
  Weight: 63.8 kg

DRUGS (17)
  1. DEPAKENE?R [Concomitant]
     Active Substance: VALPROATE SODIUM
     Dosage: UNK
  2. TAZOPIPE [Concomitant]
     Active Substance: PIPERACILLIN SODIUM\TAZOBACTAM SODIUM
     Dosage: 4.5 G, Q8H
     Dates: start: 20210402, end: 20210407
  3. OMEPRAZOLE [OMEPRAZOLE SODIUM] [Concomitant]
     Active Substance: OMEPRAZOLE SODIUM
     Dosage: UNK
  4. ACELIO [Concomitant]
     Active Substance: ACETAMINOPHEN
     Dosage: 100 ML
  5. HEPARIN [Concomitant]
     Active Substance: HEPARIN SODIUM
     Dosage: 10000 KIU
     Dates: start: 20210402, end: 20210402
  6. OLANZAPINE OD [Concomitant]
     Active Substance: OLANZAPINE
     Dosage: UNK
  7. SENNOSIDE [SENNOSIDE A+B] [Concomitant]
     Active Substance: SENNOSIDES A AND B
     Dosage: UNK
  8. LEVOFLOXACIN HEMIHYDRATE [Concomitant]
     Active Substance: LEVOFLOXACIN
     Dosage: 500 MG
     Dates: start: 20210402, end: 20210407
  9. METHYLPREDNISOLONE NA SUCCINATE [Concomitant]
     Active Substance: METHYLPREDNISOLONE SODIUM SUCCINATE
     Dosage: 1 G
     Dates: start: 20210402, end: 202104
  10. AKINETON [Concomitant]
     Active Substance: BIPERIDEN HYDROCHLORIDE
     Dosage: UNK MG
  11. VEKLURY [Suspect]
     Active Substance: REMDESIVIR
     Indication: COVID-19 PNEUMONIA
     Dosage: 200 MG, QD
     Route: 041
     Dates: start: 20210402, end: 20210402
  12. FLUNITRAZEPAM [Concomitant]
     Active Substance: FLUNITRAZEPAM
     Dosage: UNK
  13. DEXART [Concomitant]
     Active Substance: DEXAMETHASONE SODIUM PHOSPHATE
     Dosage: 2 ML
  14. URSODEOXYCHOLIC ACID [Concomitant]
     Active Substance: URSODIOL
     Dosage: UNK
  15. TEGRETOL [Concomitant]
     Active Substance: CARBAMAZEPINE
     Dosage: 200 MG
  16. VEKLURY [Suspect]
     Active Substance: REMDESIVIR
     Dosage: 100 MG, QD
     Route: 041
     Dates: start: 20210403, end: 20210405
  17. LASIX [Concomitant]
     Active Substance: FUROSEMIDE
     Dosage: 2 ML

REACTIONS (1)
  - Hepatic function abnormal [Recovering/Resolving]

NARRATIVE: CASE EVENT DATE: 20210405
